FAERS Safety Report 5980246-1 (Version None)
Quarter: 2008Q4

REPORT INFORMATION
  Report Type: 
  Country: None (occurrence: None)
  Receive Date: 20081205
  Receipt Date: 20081126
  Transmission Date: 20090506
  Serious: Yes (Hospitalization, Other)
  Sender: FDA-Public Use
  Company Number: PHBS2008US06464

PATIENT
  Age: 10 Year
  Sex: Male

DRUGS (19)
  1. CYCLOSPORINE [Suspect]
     Indication: CORD BLOOD TRANSPLANT THERAPY
  2. CYCLOSPORINE [Suspect]
     Indication: PROPHYLAXIS AGAINST GRAFT VERSUS HOST DISEASE
  3. CYCLOPHOSPHAMIDE [Suspect]
     Indication: CORD BLOOD TRANSPLANT THERAPY
     Dosage: 60 MG/KG/DAY
  4. ANTI-THYMOCYTE GLOBULIN NOS [Suspect]
     Indication: PROPHYLAXIS AGAINST GRAFT VERSUS HOST DISEASE
  5. METHYLPREDNISOLONE 16MG TAB [Suspect]
     Indication: PROPHYLAXIS AGAINST GRAFT VERSUS HOST DISEASE
  6. PREDNISONE TAB [Concomitant]
  7. STEROIDS NOS [Concomitant]
     Dosage: 0.5 MG/KG, Q48H
  8. MYCOPHENOLATE MOFETIL [Concomitant]
  9. TACROLIMUS [Concomitant]
  10. INFLIXIMAB [Concomitant]
  11. CLONIDINE [Concomitant]
     Indication: HYPERTENSION
  12. LABETALOL HCL [Concomitant]
     Indication: HYPERTENSION
  13. AMLODIPINE [Concomitant]
     Indication: HYPERTENSION
  14. ENALAPRIL MALEATE [Concomitant]
     Indication: HYPERTENSION
  15. RIFABUTIN [Concomitant]
     Indication: ATYPICAL MYCOBACTERIAL INFECTION
  16. GATIFLOXACIN [Concomitant]
     Indication: ATYPICAL MYCOBACTERIAL INFECTION
  17. CLARITHROMYCIN [Concomitant]
  18. GEMFIBROZIL [Concomitant]
  19. OMEPRAZOLE [Concomitant]

REACTIONS (14)
  - ADENOVIRUS INFECTION [None]
  - ADRENAL INSUFFICIENCY [None]
  - ATYPICAL MYCOBACTERIAL INFECTION [None]
  - BACTERIAL INFECTION [None]
  - CHRONIC GRAFT VERSUS HOST DISEASE [None]
  - GLOMERULOSCLEROSIS [None]
  - GROWTH HORMONE DEFICIENCY [None]
  - HYPERTENSION [None]
  - HYPOTHYROIDISM [None]
  - KIDNEY FIBROSIS [None]
  - POLYOMAVIRUS-ASSOCIATED NEPHROPATHY [None]
  - RENAL TUBULAR ATROPHY [None]
  - RENAL TUBULAR NECROSIS [None]
  - VIRAL INFECTION [None]
